FAERS Safety Report 18431897 (Version 1)
Quarter: 2020Q4

REPORT INFORMATION
  Report Type: Spontaneous
  Country: US (occurrence: US)
  Receive Date: 20201027
  Receipt Date: 20201027
  Transmission Date: 20210114
  Serious: No
  Sender: FDA-Public Use
  Company Number: US-EISAI MEDICAL RESEARCH-EC-2020-082254

PATIENT
  Sex: Female

DRUGS (5)
  1. LOSARTAN. [Concomitant]
     Active Substance: LOSARTAN
     Indication: PRODUCT USED FOR UNKNOWN INDICATION
     Dosage: DOSAGE AND FREQUENCY UNKNOWN
  2. ELIQUIS [Concomitant]
     Active Substance: APIXABAN
     Indication: PRODUCT USED FOR UNKNOWN INDICATION
     Dosage: DOSAGE AND FREQUENCY UNKNOWN
  3. KEYTRUDA [Concomitant]
     Active Substance: PEMBROLIZUMAB
     Indication: ENDOMETRIAL CANCER
     Dates: start: 2020, end: 2020
  4. LENVIMA [Suspect]
     Active Substance: LENVATINIB
     Indication: ENDOMETRIAL CANCER
     Route: 048
     Dates: start: 2020, end: 2020
  5. COREG [Concomitant]
     Active Substance: CARVEDILOL
     Indication: PRODUCT USED FOR UNKNOWN INDICATION
     Dosage: DOSAGE AND FREQUENCY UNKNOWN

REACTIONS (1)
  - Lipase increased [Unknown]

NARRATIVE: CASE EVENT DATE: 202009
